FAERS Safety Report 24532525 (Version 1)
Quarter: 2024Q4

REPORT INFORMATION
  Report Type: Spontaneous
  Country: US (occurrence: US)
  Receive Date: 20241022
  Receipt Date: 20241022
  Transmission Date: 20250114
  Serious: No
  Sender: VIIV
  Company Number: US-VIIV HEALTHCARE-US2024AMR128257

PATIENT

DRUGS (1)
  1. DOVATO [Suspect]
     Active Substance: DOLUTEGRAVIR SODIUM\LAMIVUDINE
     Indication: HIV infection
     Dosage: UNK, QD, 50 MG/300MG
     Route: 048

REACTIONS (1)
  - Weight increased [Unknown]
